FAERS Safety Report 15877170 (Version 1)
Quarter: 2019Q1

REPORT INFORMATION
  Report Type: Report from Study
  Country: DO (occurrence: DO)
  Receive Date: 20190128
  Receipt Date: 20190128
  Transmission Date: 20190417
  Serious: Yes (Other)
  Sender: FDA-Public Use
  Company Number: DO-SA-2019SA018605

PATIENT
  Age: 73 Year
  Sex: Male

DRUGS (1)
  1. IRBESARTAN. [Suspect]
     Active Substance: IRBESARTAN
     Indication: HYPERTENSION
     Dosage: 2 TABLETS OF 300 MG OF IRBESARTAN (APROVEL ) EVERY 24 HOURS
     Route: 048

REACTIONS (3)
  - Off label use [Unknown]
  - Vascular graft [Unknown]
  - Diabetes mellitus [Not Recovered/Not Resolved]
